FAERS Safety Report 10159787 (Version 1)
Quarter: 2014Q2

REPORT INFORMATION
  Report Type: Spontaneous
  Country: GB (occurrence: GB)
  Receive Date: 20140508
  Receipt Date: 20140508
  Transmission Date: 20141212
  Serious: Yes (Hospitalization)
  Sender: FDA-Public Use
  Company Number: GB-MYLANLABS-2014S1010081

PATIENT
  Age: 93 Year
  Sex: Female

DRUGS (2)
  1. ASPIRIN [Suspect]
     Indication: AORTIC STENOSIS
     Route: 065
  2. ALENDRONIC ACID [Suspect]
     Route: 065

REACTIONS (1)
  - Upper gastrointestinal haemorrhage [Not Recovered/Not Resolved]
